FAERS Safety Report 7504217-9 (Version None)
Quarter: 2011Q2

REPORT INFORMATION
  Report Type: 
  Country: None (occurrence: None)
  Receive Date: 20110525
  Receipt Date: 20110516
  Transmission Date: 20111010
  Serious: Yes (Hospitalization, Disabling, Congenital Anomaly, Other)
  Sender: FDA-Public Use
  Company Number: US-PFIZER INC-2011105857

PATIENT
  Sex: Male
  Weight: 2.9 kg

DRUGS (14)
  1. REGLAN [Concomitant]
     Dosage: 10 MG, EVERY 6 PM
     Route: 048
  2. PRILOSEC [Concomitant]
     Dosage: UNK
  3. RESTORIL [Concomitant]
     Dosage: UNK
  4. DARVOCET [Concomitant]
     Indication: PAIN
     Dosage: UNK, 1X/DAY
     Route: 048
  5. EFFEXOR XR [Suspect]
     Dosage: 125 MG, EVERY DAY
     Route: 064
     Dates: start: 20050606
  6. FIORINAL [Concomitant]
     Indication: CLUSTER HEADACHE
     Dosage: UNK
  7. EFFEXOR XR [Suspect]
     Dosage: 150 MG, UNK
     Route: 064
     Dates: start: 20050617
  8. EFFEXOR [Suspect]
     Indication: DEPRESSION
     Dosage: 75 MG, EVERY DAY
     Route: 064
     Dates: start: 20051213
  9. PROCARDIA [Concomitant]
     Indication: PAIN
     Dosage: 10 OR 20 MG INITIALLY IN THE MORNING
  10. ACETAMINOPHEN [Concomitant]
     Indication: PAIN
     Dosage: UNK
  11. EFFEXOR XR [Suspect]
     Indication: DEPRESSION
     Dosage: 150 MG, UNK
     Route: 064
     Dates: start: 20041101
  12. PROCARDIA [Concomitant]
     Dosage: 10 MG, EVERY FOUR HOURS
  13. FIORICET [Concomitant]
     Dosage: UNK, EVERY 4-6 PM
     Route: 048
  14. AZITHROMYCIN [Concomitant]
     Indication: PNEUMONIA
     Dosage: UNK
     Dates: start: 20060105

REACTIONS (25)
  - FEEDING DISORDER NEONATAL [None]
  - PULMONARY OEDEMA [None]
  - PULMONARY HYPERTENSION [None]
  - CONJUNCTIVITIS [None]
  - DIARRHOEA [None]
  - GASTROOESOPHAGEAL REFLUX DISEASE [None]
  - RESPIRATORY DISTRESS [None]
  - ATRIAL TACHYCARDIA [None]
  - DRUG EXPOSURE DURING PREGNANCY [None]
  - PNEUMONIA [None]
  - ATRIAL SEPTAL DEFECT [None]
  - VENTRICULAR SEPTAL DEFECT [None]
  - LETHARGY [None]
  - POSITIONAL PLAGIOCEPHALY [None]
  - ATELECTASIS [None]
  - INTRAVENTRICULAR HAEMORRHAGE [None]
  - DUCTUS ARTERIOSUS STENOSIS FOETAL [None]
  - PULMONARY VENO-OCCLUSIVE DISEASE [None]
  - CANDIDIASIS [None]
  - ARRHYTHMIA [None]
  - VENTRICULAR TACHYCARDIA [None]
  - CARDIOMEGALY [None]
  - ANOMALOUS PULMONARY VENOUS CONNECTION [None]
  - BRONCHIOLITIS [None]
  - VIRAL UPPER RESPIRATORY TRACT INFECTION [None]
